FAERS Safety Report 21125110 (Version 1)
Quarter: 2022Q3

REPORT INFORMATION
  Report Type: Spontaneous
  Country: US (occurrence: None)
  Receive Date: 20220723
  Receipt Date: 20220723
  Transmission Date: 20221027
  Serious: Yes (Hospitalization)
  Sender: FDA-Public Use
  Company Number: None

PATIENT
  Sex: Female
  Weight: 48.2 kg

DRUGS (1)
  1. TOPOTECAN [Suspect]
     Active Substance: TOPOTECAN HYDROCHLORIDE
     Dosage: OTHER QUANTITY : 4.5 MG;?

REACTIONS (5)
  - Treatment failure [None]
  - Neutrophil count decreased [None]
  - Discomfort [None]
  - Abdominal pain upper [None]
  - Small intestinal obstruction [None]

NARRATIVE: CASE EVENT DATE: 20220712
